FAERS Safety Report 20196900 (Version 3)
Quarter: 2022Q1

REPORT INFORMATION
  Report Type: Report from Study
  Country: US (occurrence: US)
  Receive Date: 20211217
  Receipt Date: 20220318
  Transmission Date: 20220424
  Serious: Yes (Hospitalization, Other)
  Sender: FDA-Public Use
  Company Number: US-BIOVITRUM-2021US11550

PATIENT
  Sex: Male

DRUGS (1)
  1. KINERET [Suspect]
     Active Substance: ANAKINRA
     Indication: Rheumatoid arthritis
     Route: 058
     Dates: start: 20211129

REACTIONS (7)
  - Pericardial effusion [Unknown]
  - Diarrhoea [Unknown]
  - Insomnia [Unknown]
  - Drug ineffective [Unknown]
  - Hypoaesthesia [Unknown]
  - SARS-CoV-2 test positive [Unknown]
  - Injection site pain [Unknown]
